FAERS Safety Report 24587271 (Version 2)
Quarter: 2024Q4

REPORT INFORMATION
  Report Type: Report from Study
  Country: CN (occurrence: CN)
  Receive Date: 20241107
  Receipt Date: 20241111
  Transmission Date: 20250115
  Serious: Yes (Other)
  Sender: ABBVIE
  Company Number: CN-ABBVIE-5992094

PATIENT
  Age: 84 Year
  Sex: Male

DRUGS (2)
  1. VENETOCLAX [Suspect]
     Active Substance: VENETOCLAX
     Indication: Myelodysplastic syndrome
     Dosage: DAY 8 TO DAY 28
     Route: 048
  2. AZACITIDINE [Suspect]
     Active Substance: AZACITIDINE
     Indication: Myelodysplastic syndrome
     Dosage: DAY 1 TO DAY 7
     Route: 058

REACTIONS (2)
  - Myelosuppression [Unknown]
  - Off label use [Unknown]
